FAERS Safety Report 16263839 (Version 1)
Quarter: 2019Q2

REPORT INFORMATION
  Report Type: Spontaneous
  Country: DK (occurrence: DK)
  Receive Date: 20190502
  Receipt Date: 20190502
  Transmission Date: 20190711
  Serious: Yes (Hospitalization)
  Sender: FDA-Public Use
  Company Number: DK-ACCORD-124972

PATIENT
  Age: 71 Year
  Sex: Female

DRUGS (5)
  1. ZOLEDRONIC ACID [Suspect]
     Active Substance: ZOLEDRONIC ACID
     Indication: BREAST CANCER METASTATIC
     Dosage: STRENGTH: 4 MG/100 ML
     Route: 042
     Dates: start: 20171206, end: 20181029
  2. LETROZOLE. [Concomitant]
     Active Substance: LETROZOLE
     Indication: BREAST CANCER
     Dosage: STRENGTH: 2,5 MG.
     Route: 048
     Dates: start: 20171102
  3. COLECALCIFEROL [Concomitant]
     Active Substance: CHOLECALCIFEROL
     Indication: VITAMIN SUPPLEMENTATION
     Dosage: UNIQUE FORTE 400 MG CALCIUM + 19 D-VITAMIN.
     Route: 048
     Dates: start: 20170313
  4. PALBOCICLIB [Concomitant]
     Active Substance: PALBOCICLIB
     Indication: BREAST CANCER
     Dosage: STYRKE: 75 MG.
     Route: 048
     Dates: start: 20171206
  5. PARACETAMOL [Concomitant]
     Active Substance: ACETAMINOPHEN
     Indication: PAIN
     Dosage: 500 MG DOSE: 2 TABLETS AS NEEDED
     Route: 048
     Dates: start: 20171017

REACTIONS (7)
  - Gingival swelling [Unknown]
  - Pain in jaw [Unknown]
  - Peri-implantitis [Unknown]
  - Osteonecrosis of jaw [Not Recovered/Not Resolved]
  - Gingival erythema [Unknown]
  - Mucosal hypertrophy [Unknown]
  - Jaw operation [Recovered/Resolved]

NARRATIVE: CASE EVENT DATE: 201810
